FAERS Safety Report 5854051-0 (Version None)
Quarter: 2008Q3

REPORT INFORMATION
  Report Type: 
  Country: None (occurrence: None)
  Receive Date: 20080822
  Receipt Date: 20080815
  Transmission Date: 20090109
  Serious: Yes (Death, Hospitalization)
  Sender: FDA-Public Use
  Company Number: AU-AVENTIS-200817068GDDC

PATIENT
  Age: 44 Year
  Sex: Male
  Weight: 95 kg

DRUGS (14)
  1. TAXOTERE [Suspect]
     Route: 042
     Dates: start: 20061212, end: 20070403
  2. INVESTIGATIONAL DRUG [Suspect]
     Route: 048
     Dates: start: 20061205, end: 20070425
  3. OTHER ANTINEOPLASTIC AGENTS [Suspect]
     Route: 048
     Dates: start: 20061205, end: 20070425
  4. OXYCONTIN [Concomitant]
     Route: 048
     Dates: start: 20061106
  5. OXYNORM [Concomitant]
     Route: 048
     Dates: start: 20061106
  6. PANADOL                            /00020001/ [Concomitant]
     Route: 048
  7. COLOXYL WITH SENNA [Concomitant]
     Route: 048
     Dates: start: 20061030
  8. PERINDOPRIL ERBUMINE [Concomitant]
     Route: 048
     Dates: start: 20061212
  9. GRANISETRON HCL [Concomitant]
     Route: 048
     Dates: start: 20061212
  10. STOMATOLOGICALS, MOUTH PREPARATIONS [Concomitant]
     Dates: start: 20061212
  11. MAXOLON [Concomitant]
     Route: 048
     Dates: start: 20061212
  12. NYSTATIN [Concomitant]
     Route: 048
     Dates: start: 20070123
  13. MOVICOL                            /01053601/ [Concomitant]
     Route: 048
     Dates: start: 20061030
  14. ENOXAPARIN SODIUM [Concomitant]

REACTIONS (1)
  - HEPATIC ENCEPHALOPATHY [None]
